FAERS Safety Report 5734844-0 (Version None)
Quarter: 2008Q2

REPORT INFORMATION
  Report Type: 
  Country: None (occurrence: None)
  Receive Date: 20080512
  Receipt Date: 20080502
  Transmission Date: 20081010
  Serious: Yes (Other)
  Sender: FDA-Public Use
  Company Number: A0696773B

PATIENT
  Sex: Male
  Weight: 2.5 kg

DRUGS (4)
  1. WELLBUTRIN [Suspect]
     Indication: DEPRESSION
     Dates: start: 20000101, end: 20011101
  2. ZYRTEC [Concomitant]
  3. MAGNESIUM [Concomitant]
     Indication: PRE-ECLAMPSIA
     Route: 042
  4. DEXAMETHASONE [Concomitant]

REACTIONS (16)
  - ASTHMA [None]
  - BLOOD BICARBONATE INCREASED [None]
  - DERMATITIS DIAPER [None]
  - DIARRHOEA [None]
  - DRUG EXPOSURE DURING PREGNANCY [None]
  - ERYTHEMA [None]
  - GASTROENTERITIS [None]
  - HYPERBILIRUBINAEMIA [None]
  - IRRITABILITY [None]
  - JAUNDICE [None]
  - OCULAR ICTERUS [None]
  - PREMATURE BABY [None]
  - PYREXIA [None]
  - RESPIRATORY DISTRESS [None]
  - VIRAL UPPER RESPIRATORY TRACT INFECTION [None]
  - VOMITING [None]
